FAERS Safety Report 4292584-1 (Version None)
Quarter: 2004Q1

REPORT INFORMATION
  Report Type: 
  Country: None (occurrence: None)
  Receive Date: 20040126
  Receipt Date: 20031112
  Transmission Date: 20041129
  Serious: No
  Sender: FDA-Public Use
  Company Number: USA031152482

PATIENT
  Age: 53 Year
  Sex: Female

DRUGS (6)
  1. FORTEO [Suspect]
     Indication: OSTEOPOROSIS
     Dosage: 20 UG/DAY
     Dates: start: 20031102
  2. FLUOXETINE HCL [Concomitant]
  3. LITHIUM CARBONATE [Concomitant]
  4. CLONAZEPAM [Concomitant]
  5. PREMARIN [Concomitant]
  6. PROGESTERONE [Concomitant]

REACTIONS (1)
  - INJECTION SITE ERYTHEMA [None]
